FAERS Safety Report 6507007-9 (Version None)
Quarter: 2009Q4

REPORT INFORMATION
  Report Type: 
  Country: None (occurrence: None)
  Receive Date: 20091216
  Receipt Date: 20091207
  Transmission Date: 20100525
  Serious: Yes (Other)
  Sender: FDA-Public Use
  Company Number: JHP200900459

PATIENT
  Age: 10 Year
  Sex: Male

DRUGS (2)
  1. EPINEPHRINE [Suspect]
     Indication: ANAPHYLACTIC REACTION
     Dosage: INTRAMUSCULAR
     Route: 030
     Dates: start: 20091123, end: 20091123
  2. ASTHMA MEDICATION [Concomitant]

REACTIONS (1)
  - PAIN IN EXTREMITY [None]
